FAERS Safety Report 7376200-8 (Version None)
Quarter: 2011Q1

REPORT INFORMATION
  Report Type: 
  Country: None (occurrence: None)
  Receive Date: 20110325
  Receipt Date: 20110310
  Transmission Date: 20110831
  Serious: Yes (Death, Life-Threatening, Hospitalization, Disabling, Other)
  Sender: FDA-Public Use
  Company Number: RU-BAYER-201047943GPV

PATIENT
  Sex: Male
  Weight: 65 kg

DRUGS (27)
  1. CLOPIDOGREL [Interacting]
     Indication: ACUTE CORONARY SYNDROME
  2. ISOSORBIDE DINITRATE [Concomitant]
  3. OMEZ [Concomitant]
  4. PRESTARIUM [Concomitant]
  5. ZOCOR [Concomitant]
  6. VITAMIN B6 [Concomitant]
  7. RIVAROXABAN [Interacting]
     Dosage: DOSAGE FORM: TABLET
     Dates: start: 20090619, end: 20100831
  8. RANITIDINE HCL [Concomitant]
  9. MAGNESIUM [Concomitant]
  10. GIK SOLUTION [Concomitant]
  11. ENAP [Concomitant]
  12. SIMVASTATIN [Concomitant]
  13. GIK SOLUTION [Concomitant]
  14. RIVAROXABAN [Interacting]
     Dosage: DOSAGE FORM: TABLET
     Route: 048
     Dates: start: 20100915, end: 20101112
  15. ASPIRIN [Interacting]
     Dates: start: 20090618
  16. METOPROLOL [Concomitant]
  17. DROPERIDOL [Concomitant]
  18. ASPIRIN [Interacting]
     Dates: end: 20090617
  19. METOPROLOL SUCCINATE [Concomitant]
  20. ASPIRIN [Suspect]
     Indication: ACUTE CORONARY SYNDROME
     Dates: end: 20090617
  21. ASPIRIN [Interacting]
     Dates: end: 20090615
  22. CLEXANE [Concomitant]
  23. MORPHINE [Concomitant]
  24. BETALOC ZOK [Concomitant]
  25. VITAMIN B12 [Concomitant]
  26. HEPARIN [Concomitant]
  27. CLOPIDOGREL [Interacting]
     Dates: end: 20090615

REACTIONS (2)
  - HAEMORRHAGIC STROKE [None]
  - SUDDEN DEATH [None]
